FAERS Safety Report 12981849 (Version 2)
Quarter: 2017Q2

REPORT INFORMATION
  Report Type: Report from Study
  Country: CA (occurrence: CA)
  Receive Date: 20161129
  Receipt Date: 20170508
  Transmission Date: 20170830
  Serious: Yes (Hospitalization, Other)
  Sender: FDA-Public Use
  Company Number: CA-AMGEN-CANCT2015106420

PATIENT
  Age: 69 Year
  Sex: Male

DRUGS (8)
  1. SEPTRA [Concomitant]
     Active Substance: SULFAMETHOXAZOLE\TRIMETHOPRIM
     Dosage: UNK, MONDAY-WEDNESDAY-FRIDAY
     Route: 048
     Dates: start: 20140928, end: 20151009
  2. LORATADINE. [Concomitant]
     Active Substance: LORATADINE
     Dosage: 10 MG, QD
     Route: 048
     Dates: start: 20151001, end: 20151009
  3. MEROPENEM. [Concomitant]
     Active Substance: MEROPENEM
     Dosage: 1 G, Q8H
     Route: 042
     Dates: start: 20151007, end: 20151021
  4. ZOPICLONE [Concomitant]
     Active Substance: ZOPICLONE
     Dosage: 75 MG, QHS
     Route: 048
     Dates: start: 20151006, end: 20151014
  5. ACYCLOVIR. [Concomitant]
     Active Substance: ACYCLOVIR
     Dosage: 310 MG, Q8H
     Route: 042
     Dates: start: 20151008, end: 20151014
  6. PANTOLOC [Concomitant]
     Active Substance: PANTOPRAZOLE SODIUM
     Dosage: 40 MG, QD
     Route: 042
     Dates: start: 20151009
  7. TINZAPARIN [Concomitant]
     Active Substance: TINZAPARIN
     Dosage: 10000 UNIT, QD
     Route: 058
     Dates: start: 20150928, end: 20151015
  8. BLINATUMOMAB [Suspect]
     Active Substance: BLINATUMOMAB
     Indication: ACUTE LYMPHOCYTIC LEUKAEMIA
     Dosage: 28 MUG, QD
     Route: 042
     Dates: start: 20150929

REACTIONS (3)
  - Depressed level of consciousness [Recovered/Resolved]
  - Diabetic ketoacidosis [Recovered/Resolved]
  - Superior vena cava occlusion [Recovered/Resolved]

NARRATIVE: CASE EVENT DATE: 20151008
